FAERS Safety Report 7148238-7 (Version None)
Quarter: 2010Q4

REPORT INFORMATION
  Report Type: 
  Country: None (occurrence: None)
  Receive Date: 20101209
  Receipt Date: 20101201
  Transmission Date: 20110411
  Serious: Yes (Hospitalization)
  Sender: FDA-Public Use
  Company Number: PHHO2010JP18497

PATIENT
  Sex: Male
  Weight: 45 kg

DRUGS (11)
  1. STI571/CGP57148B T35717+TAB [Suspect]
     Indication: PULMONARY HYPERTENSION
     Dosage: DOUBLE BLIND
     Route: 048
     Dates: start: 20101112
  2. STI571/CGP57148B T35717+TAB [Suspect]
     Dosage: UNK
     Route: 048
     Dates: start: 20101124, end: 20101129
  3. TRACLEER [Concomitant]
  4. BERAPROST SODIUM [Concomitant]
  5. URSO 250 [Concomitant]
  6. LASIX [Concomitant]
  7. ALDACTONE [Concomitant]
  8. ALOSITOL [Concomitant]
  9. WARFARIN SODIUM [Concomitant]
  10. LANIRAPID [Concomitant]
  11. SUNRYTHM [Concomitant]

REACTIONS (8)
  - DIARRHOEA [None]
  - DRUG ERUPTION [None]
  - ERYTHEMA [None]
  - HEADACHE [None]
  - MALAISE [None]
  - PRURITUS [None]
  - PYREXIA [None]
  - RASH [None]
